FAERS Safety Report 5010534-7 (Version None)
Quarter: 2006Q2

REPORT INFORMATION
  Report Type: 
  Country: None (occurrence: None)
  Receive Date: 20060523
  Receipt Date: 20060516
  Transmission Date: 20061013
  Serious: Yes (Other)
  Sender: FDA-Public Use
  Company Number: 001-0945-M0100072

PATIENT
  Age: 74 Year
  Sex: Male
  Weight: 99.7913 kg

DRUGS (5)
  1. NEURONTIN [Suspect]
     Indication: NEUROPATHY
     Dosage: 300 MG (100 MG, 3 IN 1 D), ORAL
     Route: 048
  2. LYRICA [Suspect]
     Indication: NEUROPATHY
     Dosage: 150 MG (50 MG, 3 IN 1 D), ORAL
     Route: 048
     Dates: start: 20060101, end: 20060301
  3. PERCOCET [Concomitant]
  4. ZETIA [Concomitant]
  5. ALL OTHER THERAPEUTIC PRODUCTS [Concomitant]

REACTIONS (3)
  - COLON CANCER [None]
  - FAECAL INCONTINENCE [None]
  - MUSCULAR WEAKNESS [None]
